FAERS Safety Report 17755722 (Version 4)
Quarter: 2020Q3

REPORT INFORMATION
  Report Type: Report from Study
  Country: US (occurrence: US)
  Receive Date: 20200507
  Receipt Date: 20200826
  Transmission Date: 20201102
  Serious: Yes (Other)
  Sender: FDA-Public Use
  Company Number: US-MYLANLABS-2020M1033293

PATIENT
  Age: 40 Year
  Sex: Female
  Weight: 46.25 kg

DRUGS (3)
  1. GLATIRAMER ACETATE INJECTION [Suspect]
     Active Substance: GLATIRAMER ACETATE
     Dosage: 40 MILLIGRAM, 3XW
     Route: 058
     Dates: start: 20200323
  2. GLATIRAMER ACETATE INJECTION [Suspect]
     Active Substance: GLATIRAMER ACETATE
     Dosage: 40 MILLIGRAM, 3XW
     Route: 058
     Dates: start: 2020
  3. GLATIRAMER ACETATE INJECTION [Suspect]
     Active Substance: GLATIRAMER ACETATE
     Indication: RELAPSING-REMITTING MULTIPLE SCLEROSIS
     Dosage: 40 MILLIGRAM, 3XW
     Route: 058

REACTIONS (12)
  - Tongue disorder [Unknown]
  - Oropharyngeal pain [Unknown]
  - Injection site pain [Recovered/Resolved]
  - Multiple sclerosis relapse [Recovering/Resolving]
  - Dry skin [Unknown]
  - Fungal infection [Not Recovered/Not Resolved]
  - Muscular weakness [Unknown]
  - Injection site swelling [Recovered/Resolved]
  - Candida infection [Not Recovered/Not Resolved]
  - Erythema [Unknown]
  - Neuralgia [Recovering/Resolving]
  - Injection site urticaria [Recovered/Resolved]

NARRATIVE: CASE EVENT DATE: 202003
